FAERS Safety Report 12860200 (Version 2)
Quarter: 2017Q1

REPORT INFORMATION
  Report Type: Spontaneous
  Country: US (occurrence: US)
  Receive Date: 20161019
  Receipt Date: 20170111
  Transmission Date: 20170428
  Serious: No
  Sender: FDA-Public Use
  Company Number: US-GLAXOSMITHKLINE-US2016GSK152984

PATIENT
  Age: 67 Year
  Sex: Female

DRUGS (2)
  1. TANZEUM [Suspect]
     Active Substance: ALBIGLUTIDE
     Indication: TYPE 2 DIABETES MELLITUS
     Dosage: 30 MG, WE
     Route: 042
     Dates: start: 201608
  2. TANZEUM [Suspect]
     Active Substance: ALBIGLUTIDE
     Dosage: UNK

REACTIONS (8)
  - Fungal infection [Recovering/Resolving]
  - Wrong technique in product usage process [Unknown]
  - Vulvovaginal mycotic infection [Recovering/Resolving]
  - Erythema [Recovering/Resolving]
  - Injection site pruritus [Unknown]
  - Injection site erythema [Recovering/Resolving]
  - Product preparation error [Unknown]
  - Device use error [Unknown]

NARRATIVE: CASE EVENT DATE: 20161003
